FAERS Safety Report 18015732 (Version 3)
Quarter: 2021Q3

REPORT INFORMATION
  Report Type: Spontaneous
  Country: US (occurrence: US)
  Receive Date: 20200713
  Receipt Date: 20210816
  Transmission Date: 20211014
  Serious: No
  Sender: FDA-Public Use
  Company Number: US-PFIZER INC-2020266928

PATIENT
  Age: 58 Year
  Sex: Male

DRUGS (1)
  1. INLYTA [Suspect]
     Active Substance: AXITINIB
     Dosage: 5 MG
     Dates: start: 20200615

REACTIONS (8)
  - Dyspnoea [Unknown]
  - Pollakiuria [Unknown]
  - Dry skin [Unknown]
  - Skin lesion [Recovering/Resolving]
  - Genital lesion [Recovering/Resolving]
  - Asthenia [Unknown]
  - Nausea [Unknown]
  - Hypoaesthesia [Unknown]
